FAERS Safety Report 5460407-0 (Version None)
Quarter: 2007Q3

REPORT INFORMATION
  Report Type: 
  Country: None (occurrence: None)
  Receive Date: 20070919
  Receipt Date: 20070716
  Transmission Date: 20080115
  Serious: No
  Sender: FDA-Public Use
  Company Number: US-ASTRAZENECA-2007UW16500

PATIENT
  Age: 368 Month
  Sex: Female
  Weight: 122.7 kg

DRUGS (7)
  1. SEROQUEL [Suspect]
     Indication: DEPRESSION
     Route: 048
     Dates: start: 20000610, end: 20041101
  2. SEROQUEL [Suspect]
     Route: 048
     Dates: start: 20000610, end: 20041101
  3. SEROQUEL [Suspect]
     Route: 048
     Dates: start: 20000610, end: 20041101
  4. RISPERDAL [Concomitant]
     Indication: DEPRESSION
     Dates: start: 20020701, end: 20021001
  5. RISPERDAL [Concomitant]
     Dates: start: 20020701, end: 20021001
  6. RISPERDAL [Concomitant]
     Dates: start: 20020701, end: 20021001
  7. ZYPREXA [Concomitant]

REACTIONS (2)
  - DRUG INEFFECTIVE [None]
  - TYPE 2 DIABETES MELLITUS [None]
